FAERS Safety Report 14302405 (Version 1)
Quarter: 2017Q4

REPORT INFORMATION
  Report Type: Spontaneous
  Country: US (occurrence: US)
  Receive Date: 20171219
  Receipt Date: 20171219
  Transmission Date: 20180321
  Serious: No
  Sender: FDA-Public Use
  Company Number: US-SUPERNUS PHARMACEUTICALS, INC.-2017SUP00281

PATIENT
  Age: 41 Year
  Sex: Female
  Weight: 104.31 kg

DRUGS (2)
  1. LEXAPRO [Suspect]
     Active Substance: ESCITALOPRAM OXALATE
     Dosage: UNK
     Dates: end: 20171011
  2. TROKENDI XR [Suspect]
     Active Substance: TOPIRAMATE
     Indication: SEIZURE
     Dosage: 50 MG, 1X/DAY
     Route: 048
     Dates: start: 201709

REACTIONS (4)
  - Insomnia [Recovered/Resolved]
  - Migraine [Recovered/Resolved]
  - Anger [Recovered/Resolved]
  - Emotional disorder [Recovered/Resolved]

NARRATIVE: CASE EVENT DATE: 20171005
